FAERS Safety Report 9324822 (Version 1)
Quarter: 2013Q2

REPORT INFORMATION
  Report Type: Spontaneous
  Country: US (occurrence: US)
  Receive Date: 20130603
  Receipt Date: 20130603
  Transmission Date: 20140414
  Serious: No
  Sender: FDA-Public Use
  Company Number: US-PFIZER INC-2013167220

PATIENT
  Age: 61 Year
  Sex: Male
  Weight: 104 kg

DRUGS (5)
  1. VIAGRA [Suspect]
     Indication: ERECTILE DYSFUNCTION
     Dosage: 100 MG, 3X/WEEK
     Route: 048
     Dates: start: 2010
  2. COZAAR [Concomitant]
     Indication: HYPERTENSION
     Dosage: UNK
  3. SYNTHROID [Concomitant]
     Dosage: UNK
  4. SIMVASTATIN [Concomitant]
     Dosage: UNK
  5. TESTOSTERONE [Concomitant]
     Indication: INFECTION
     Dosage: UNK

REACTIONS (1)
  - Drug ineffective [Unknown]
